FAERS Safety Report 14849438 (Version 1)
Quarter: 2018Q2

REPORT INFORMATION
  Report Type: Report from Study
  Country: FR (occurrence: FR)
  Receive Date: 20180504
  Receipt Date: 20180504
  Transmission Date: 20180711
  Serious: Yes (Other)
  Sender: FDA-Public Use
  Company Number: FR-CHIESI USA INC.-FR-2018CHI000101

PATIENT
  Age: 0 Day
  Sex: Male
  Weight: 1.73 kg

DRUGS (4)
  1. CEPHALOSPORIN NOS [Concomitant]
     Active Substance: UNSPECIFIED INGREDIENT
     Indication: PRODUCT USED FOR UNKNOWN INDICATION
     Dosage: UNK
  2. CAFFEINE. [Concomitant]
     Active Substance: CAFFEINE
     Indication: PRODUCT USED FOR UNKNOWN INDICATION
     Dosage: UNK
  3. AMOXICILLIN. [Concomitant]
     Active Substance: AMOXICILLIN
     Indication: PRODUCT USED FOR UNKNOWN INDICATION
     Dosage: UNK
  4. CUROSURF [Suspect]
     Active Substance: PORACTANT ALFA
     Indication: NEONATAL RESPIRATORY DISTRESS SYNDROME
     Dosage: 200 MG/KG, (1X)
     Route: 007
     Dates: start: 20180209, end: 20180209

REACTIONS (1)
  - Neonatal hypoxia [Recovered/Resolved]

NARRATIVE: CASE EVENT DATE: 20180209
